FAERS Safety Report 6163262-9 (Version None)
Quarter: 2009Q2

REPORT INFORMATION
  Report Type: 
  Country: None (occurrence: None)
  Receive Date: 20090420
  Receipt Date: 20090420
  Transmission Date: 20091009
  Serious: Yes (Hospitalization)
  Sender: FDA-Public Use
  Company Number: None

PATIENT
  Age: 68 Year
  Sex: Male
  Weight: 63.5 kg

DRUGS (2)
  1. PIPERACILLIN SODIUM AND TAZOBACTAM SODIUM [Suspect]
     Dosage: 2.25 MG QID IV
     Route: 042
     Dates: start: 20081226, end: 20081229
  2. VANCOMYCIN HCL [Suspect]
     Dosage: 1 GM EVERY DAY IV
     Route: 042
     Dates: start: 20081227, end: 20081229

REACTIONS (1)
  - CLOSTRIDIAL INFECTION [None]
